FAERS Safety Report 6156679-X (Version None)
Quarter: 2009Q2

REPORT INFORMATION
  Report Type: 
  Country: None (occurrence: None)
  Receive Date: 20090416
  Receipt Date: 20090402
  Transmission Date: 20091009
  Serious: Yes (Hospitalization, Other)
  Sender: FDA-Public Use
  Company Number: US-BAYER-200827216NA

PATIENT
  Age: 20 Year
  Sex: Male
  Weight: 109 kg

DRUGS (8)
  1. CAMPATH [Suspect]
     Indication: ACUTE LYMPHOCYTIC LEUKAEMIA
     Route: 058
     Dates: start: 20080107, end: 20080224
  2. METHOTREXATE [Suspect]
     Indication: ACUTE LYMPHOCYTIC LEUKAEMIA
     Dosage: HIGHEST DOSE FROM INDUCT, ESCALATED BY 25% TO MINIMAL TOXICITY W/MAXIMUM 225MG/M2
     Route: 040
     Dates: start: 20080107, end: 20080522
  3. VINCRISTINE [Suspect]
     Indication: ACUTE LYMPHOCYTIC LEUKAEMIA
     Route: 040
     Dates: start: 20080108, end: 20080229
  4. ELSPAR [Suspect]
     Indication: ACUTE LYMPHOCYTIC LEUKAEMIA
     Route: 030
     Dates: start: 20080108, end: 20080523
  5. DEXAMETHASONE TAB [Suspect]
     Indication: ACUTE LYMPHOCYTIC LEUKAEMIA
     Route: 048
     Dates: start: 20080107, end: 20080308
  6. BACTRIM DS [Concomitant]
     Indication: INFECTION PROPHYLAXIS
     Dosage: DAILY 3 X WEEKLY
  7. FAMCICLOVIR [Concomitant]
     Indication: INFECTION PROPHYLAXIS
     Dosage: TOTAL DAILY DOSE: 500 MG
  8. PROTONIX [Concomitant]

REACTIONS (7)
  - HYPERGLYCAEMIA [None]
  - LEUKOPENIA [None]
  - LYMPHOPENIA [None]
  - NEUTROPENIA [None]
  - RENAL FAILURE ACUTE [None]
  - THROMBOCYTOPENIA [None]
  - TUMOUR LYSIS SYNDROME [None]
